FAERS Safety Report 10287491 (Version 2)
Quarter: 2014Q3

REPORT INFORMATION
  Report Type: Spontaneous
  Country: US (occurrence: US)
  Receive Date: 20140709
  Receipt Date: 20140709
  Transmission Date: 20150326
  Serious: Yes (Death, Hospitalization)
  Sender: FDA-Public Use
  Company Number: US-GLAXOSMITHKLINE-B0701314A

PATIENT
  Sex: Female

DRUGS (1)
  1. AVANDIA [Suspect]
     Active Substance: ROSIGLITAZONE MALEATE
     Indication: DIABETES MELLITUS
     Route: 048
     Dates: start: 20040505, end: 20060811

REACTIONS (4)
  - Myocardial infarction [Fatal]
  - Cardiac failure congestive [Unknown]
  - Coronary artery disease [Unknown]
  - Ischaemic cardiomyopathy [Unknown]
